FAERS Safety Report 9160186 (Version 2)
Quarter: 2015Q1

REPORT INFORMATION
  Report Type: Report from Study
  Country: JP (occurrence: JP)
  Receive Date: 20130313
  Receipt Date: 20150206
  Transmission Date: 20150721
  Serious: Yes (Life-Threatening)
  Sender: FDA-Public Use
  Company Number: JP-ROCHE-1199222

PATIENT
  Age: 76 Year
  Sex: Female

DRUGS (6)
  1. PERSANTINE [Concomitant]
     Active Substance: DIPYRIDAMOLE
     Indication: NEPHROSCLEROSIS
     Route: 048
  2. DIOVAN [Concomitant]
     Active Substance: VALSARTAN
     Indication: NEPHROSCLEROSIS
     Route: 048
  3. METHOXY POLYETHYLENE GLYCOL-EPOETIN BETA [Suspect]
     Active Substance: PEGZEREPOETIN ALFA
     Indication: NEPHROGENIC ANAEMIA
     Dosage: DOSAGE IS UNCERTAIN
     Route: 058
     Dates: start: 20121212, end: 20130206
  4. ORENCIA [Concomitant]
     Active Substance: ABATACEPT
     Route: 042
  5. MUCOSTA [Concomitant]
     Active Substance: REBAMIPIDE
     Route: 048
  6. CALBLOCK [Concomitant]
     Active Substance: AZELNIDIPINE
     Indication: NEPHROSCLEROSIS
     Route: 048

REACTIONS (1)
  - Cerebral haemorrhage [Recovered/Resolved]

NARRATIVE: CASE EVENT DATE: 20130301
